FAERS Safety Report 5241543-0 (Version None)
Quarter: 2007Q1

REPORT INFORMATION
  Report Type: 
  Country: None (occurrence: None)
  Receive Date: 20070220
  Receipt Date: 20070216
  Transmission Date: 20070707
  Serious: Yes (Hospitalization)
  Sender: FDA-Public Use
  Company Number: ES-GLAXOSMITHKLINE-B0458941A

PATIENT
  Age: 18 Month
  Sex: Male

DRUGS (1)
  1. AMOXICILLIN + CLAVULANATE POTASSIUM [Suspect]
     Indication: EAR INFECTION
     Dosage: 2.2ML UNKNOWN
     Route: 048
     Dates: start: 20070124, end: 20070130

REACTIONS (5)
  - ANGIOEDEMA [None]
  - ERYTHEMA MULTIFORME [None]
  - FACE OEDEMA [None]
  - OEDEMA PERIPHERAL [None]
  - URTICARIA [None]
